FAERS Safety Report 16806607 (Version 6)
Quarter: 2022Q1

REPORT INFORMATION
  Report Type: Spontaneous
  Country: US (occurrence: US)
  Receive Date: 20190913
  Receipt Date: 20220218
  Transmission Date: 20220423
  Serious: No
  Sender: FDA-Public Use
  Company Number: US-SA-2019SA255465

PATIENT
  Age: 63 Year
  Sex: Female
  Weight: 100 kg

DRUGS (18)
  1. DUPIXENT [Suspect]
     Active Substance: DUPILUMAB
     Indication: Dermatitis allergic
     Dosage: 300 MG, QOW
     Route: 058
     Dates: start: 201906, end: 20191023
  2. DUPIXENT [Suspect]
     Active Substance: DUPILUMAB
     Indication: Dermatitis atopic
     Dosage: 300 MG, QOW
     Route: 058
     Dates: start: 201912
  3. BETAMETHASONE DIPROPIONATE [Concomitant]
     Active Substance: BETAMETHASONE DIPROPIONATE
  4. CLOBETASOL [Concomitant]
     Active Substance: CLOBETASOL
  5. DESONIDE [Concomitant]
     Active Substance: DESONIDE
  6. DEVICE [Concomitant]
     Active Substance: DEVICE
     Dosage: UNK
  7. EUCRISA [Concomitant]
     Active Substance: CRISABOROLE
     Dosage: UNK
  8. FLUOCINONIDE [Concomitant]
     Active Substance: FLUOCINONIDE
     Dosage: UNK
  9. HYDROCORTISONE [Concomitant]
     Active Substance: HYDROCORTISONE
     Dosage: UNK
  10. HYDROXYZINE HYDROCHLORIDE [Concomitant]
     Active Substance: HYDROXYZINE HYDROCHLORIDE
     Dosage: UNK
  11. LOCOID [Concomitant]
     Active Substance: HYDROCORTISONE BUTYRATE
     Dosage: UNK
  12. MOTRIN IB [Concomitant]
     Active Substance: IBUPROFEN
     Dosage: UNK
  13. PAROXETINE [Concomitant]
     Active Substance: PAROXETINE
  14. HYDROCHLOROTHIAZIDE [Concomitant]
     Active Substance: HYDROCHLOROTHIAZIDE
     Dosage: UNK
  15. MELOXICAM [Concomitant]
     Active Substance: MELOXICAM
  16. TRIAMCINOLONE ACETONIDE [Concomitant]
     Active Substance: TRIAMCINOLONE ACETONIDE
  17. SHINGRIX [Concomitant]
     Active Substance: RECOMBINANT VARICELLA ZOSTER VIRUS (VZV) GLYCOPROTEIN E
  18. VALACYCLOVIR [Concomitant]
     Active Substance: VALACYCLOVIR HYDROCHLORIDE

REACTIONS (22)
  - Pruritus [Unknown]
  - Skin burning sensation [Unknown]
  - Dry skin [Unknown]
  - Skin exfoliation [Unknown]
  - Eye disorder [Unknown]
  - Vision blurred [Unknown]
  - Nasal congestion [Unknown]
  - Eye discharge [Unknown]
  - Lip dry [Unknown]
  - Eczema [Unknown]
  - Dry skin [Unknown]
  - Pruritus [Unknown]
  - Sleep disorder [Unknown]
  - Skin fissures [Unknown]
  - Skin exfoliation [Unknown]
  - Rash [Unknown]
  - Rash pruritic [Unknown]
  - Skin swelling [Unknown]
  - Oral herpes [Unknown]
  - Condition aggravated [Unknown]
  - Therapeutic response decreased [Unknown]
  - Product use in unapproved indication [Unknown]

NARRATIVE: CASE EVENT DATE: 20190101
